FAERS Safety Report 11191560 (Version 1)
Quarter: 2015Q2

REPORT INFORMATION
  Report Type: Spontaneous
  Country: HN (occurrence: HN)
  Receive Date: 20150616
  Receipt Date: 20150616
  Transmission Date: 20150821
  Serious: Yes (Death)
  Sender: FDA-Public Use
  Company Number: HN-PFIZER INC-2015196653

PATIENT
  Age: 54 Year
  Sex: Male

DRUGS (1)
  1. SUTENT [Suspect]
     Active Substance: SUNITINIB MALATE
     Dosage: 50 MG, DAILY
     Route: 048
     Dates: start: 20130701

REACTIONS (1)
  - Death [Fatal]

NARRATIVE: CASE EVENT DATE: 20150119
